FAERS Safety Report 16637346 (Version 1)
Quarter: 2019Q3

REPORT INFORMATION
  Report Type: Spontaneous
  Country: US (occurrence: US)
  Receive Date: 20190726
  Receipt Date: 20190726
  Transmission Date: 20191004
  Serious: No
  Sender: FDA-Public Use
  Company Number: US-PERRIGO-19US005177

PATIENT
  Age: 51 Year
  Sex: Male
  Weight: 95.24 kg

DRUGS (3)
  1. MINOXIDIL. [Suspect]
     Active Substance: MINOXIDIL
     Indication: ALOPECIA
     Dosage: 1 ML, NIGHTLY
     Route: 061
     Dates: start: 20190409, end: 20190420
  2. SPIRONOLACTONE. [Concomitant]
     Active Substance: SPIRONOLACTONE
     Indication: HYPERTENSION
     Dosage: UNK
     Route: 065
     Dates: start: 201902
  3. CLARITIN [Concomitant]
     Active Substance: LORATADINE
     Indication: SEASONAL ALLERGY
     Dosage: PRN
     Route: 065

REACTIONS (4)
  - Application site irritation [Recovering/Resolving]
  - Application site pruritus [Recovering/Resolving]
  - Inappropriate schedule of product administration [Recovered/Resolved]
  - Application site erythema [Recovering/Resolving]

NARRATIVE: CASE EVENT DATE: 20190409
